FAERS Safety Report 5991642-0 (Version None)
Quarter: 2008Q4

REPORT INFORMATION
  Report Type: 
  Country: None (occurrence: None)
  Receive Date: 20081202
  Receipt Date: 20071129
  Transmission Date: 20090506
  Serious: Yes (Disabling, Other)
  Sender: FDA-Public Use
  Company Number: WAES 0612USA04043

PATIENT
  Age: 62 Year
  Sex: Female
  Weight: 43.5453 kg

DRUGS (7)
  1. FOSAMAX [Suspect]
     Indication: OSTEOPOROSIS
     Dosage: 70 MG/WKY/PO
     Route: 048
     Dates: start: 20000101, end: 20050309
  2. CENTRUM SILVER [Concomitant]
  3. PHEUMOVAX (PNEUMOCOCCAL 14V POLY10 [Concomitant]
  4. ZETIA [Concomitant]
  5. ASPIRIN [Concomitant]
  6. CALCIUM CITRATE [Concomitant]
  7. INFLUENZA VIRUS VACCINE [Concomitant]

REACTIONS (9)
  - CHEILITIS [None]
  - FLAT ANTERIOR CHAMBER OF EYE [None]
  - HEADACHE [None]
  - JOINT SWELLING [None]
  - LIVER FUNCTION TEST ABNORMAL [None]
  - ORAL CAVITY FISTULA [None]
  - ORAL TORUS [None]
  - OSTEOMYELITIS [None]
  - OSTEONECROSIS [None]
